FAERS Safety Report 18086941 (Version 1)
Quarter: 2020Q3

REPORT INFORMATION
  Report Type: Spontaneous
  Country: US (occurrence: US)
  Receive Date: 20200729
  Receipt Date: 20200729
  Transmission Date: 20201103
  Serious: No
  Sender: FDA-Public Use
  Company Number: None

PATIENT
  Age: 31 Year
  Sex: Female
  Weight: 78.3 kg

DRUGS (1)
  1. CHLORHEXIDINE GLUCONATE .12% ORAL RINSE, USP [Suspect]
     Active Substance: CHLORHEXIDINE GLUCONATE
     Indication: GINGIVAL DISCOMFORT
     Dosage: ?          QUANTITY:1 TEASPOON(S);?
     Route: 048
     Dates: start: 20200720, end: 20200723

REACTIONS (13)
  - Stomatitis [None]
  - Glossitis [None]
  - Throat irritation [None]
  - Tongue blistering [None]
  - Pain [None]
  - Lip blister [None]
  - Oral discomfort [None]
  - Lymphadenopathy [None]
  - Lip pain [None]
  - Oral mucosal exfoliation [None]
  - Glossodynia [None]
  - Tongue discomfort [None]
  - Lip exfoliation [None]

NARRATIVE: CASE EVENT DATE: 20200721
